FAERS Safety Report 8487596 (Version 2)
Quarter: 2014Q1

REPORT INFORMATION
  Report Type: Spontaneous
  Country: US (occurrence: US)
  Receive Date: 20120402
  Receipt Date: 20140325
  Transmission Date: 20141002
  Serious: Yes (Hospitalization)
  Sender: FDA-Public Use
  Company Number: US-GLAXOSMITHKLINE-A0888131A

PATIENT
  Age: 66 Year
  Sex: Male

DRUGS (1)
  1. LAMICTAL [Suspect]
     Indication: CONVULSION
     Dosage: 200MG UNKNOWN
     Route: 048
     Dates: start: 20030716

REACTIONS (2)
  - Convulsion [Not Recovered/Not Resolved]
  - Intestinal obstruction [Unknown]
